FAERS Safety Report 22310400 (Version 1)
Quarter: 2023Q2

REPORT INFORMATION
  Report Type: Other
  Country: PK (occurrence: None)
  Receive Date: 20230511
  Receipt Date: 20230511
  Transmission Date: 20230722
  Serious: Yes (Life-Threatening, Hospitalization)
  Sender: FDA-Public Use
  Company Number: PK-Merck Healthcare KGaA-9399999

PATIENT
  Age: 52 Year
  Sex: Male

DRUGS (2)
  1. METFORMIN HYDROCHLORIDE [Suspect]
     Active Substance: METFORMIN HYDROCHLORIDE
     Indication: Type 2 diabetes mellitus
     Route: 048
  2. LOSARTAN [Concomitant]
     Active Substance: LOSARTAN
     Indication: Hypertension
     Route: 048

REACTIONS (11)
  - Haemolytic anaemia [Recovered/Resolved]
  - Toxicity to various agents [Recovered/Resolved]
  - Metabolic acidosis [Recovered/Resolved]
  - Lactic acidosis [Recovered/Resolved]
  - Sepsis [Recovered/Resolved]
  - Gastroenteritis [Recovered/Resolved]
  - Hypovolaemia [Recovered/Resolved]
  - Acute kidney injury [Recovered/Resolved]
  - Diverticulitis [Recovered/Resolved]
  - Colitis [Recovered/Resolved]
  - Blood glucose decreased [Recovered/Resolved]
